FAERS Safety Report 25729602 (Version 1)
Quarter: 2025Q3

REPORT INFORMATION
  Report Type: Report from Study
  Country: US (occurrence: US)
  Receive Date: 20250827
  Receipt Date: 20250827
  Transmission Date: 20251020
  Serious: Yes (Other)
  Sender: ABBVIE
  Company Number: US-ABBVIE-6223914

PATIENT
  Age: 69 Year
  Sex: Female
  Weight: 75 kg

DRUGS (1)
  1. RINVOQ [Suspect]
     Active Substance: UPADACITINIB
     Indication: Oral lichen planus
     Route: 048
     Dates: start: 20231215

REACTIONS (5)
  - Parkinson^s disease [Unknown]
  - Off label use [Recovering/Resolving]
  - Weight decreased [Unknown]
  - Diabetes mellitus [Unknown]
  - Blood test abnormal [Unknown]

NARRATIVE: CASE EVENT DATE: 20231215
